FAERS Safety Report 4885434-3 (Version None)
Quarter: 2005Q4

REPORT INFORMATION
  Report Type: 
  Country: None (occurrence: None)
  Receive Date: 20051220
  Receipt Date: 20050823
  Transmission Date: 20060501
  Serious: Yes (Other)
  Sender: FDA-Public Use
  Company Number: HQWYE087324AUG05

PATIENT
  Age: 48 Year
  Sex: Female
  Weight: 74.91 kg

DRUGS (5)
  1. EFFEXOR XR [Suspect]
     Indication: PANIC ATTACK
     Dosage: SEE IMAGE
     Route: 048
     Dates: start: 20040201, end: 20050101
  2. EFFEXOR XR [Suspect]
     Indication: PANIC ATTACK
     Dosage: SEE IMAGE
     Route: 048
     Dates: start: 20050101, end: 20050101
  3. EFFEXOR XR [Suspect]
     Indication: PANIC ATTACK
     Dosage: SEE IMAGE
     Route: 048
     Dates: start: 20050101, end: 20050101
  4. EFFEXOR XR [Suspect]
     Indication: PANIC ATTACK
     Dosage: SEE IMAGE
     Route: 048
     Dates: start: 20050801, end: 20050819
  5. ESTROGENS (ESTROGENS) [Concomitant]

REACTIONS (8)
  - ALOPECIA [None]
  - BALANCE DISORDER [None]
  - DIARRHOEA [None]
  - DRUG WITHDRAWAL SYNDROME [None]
  - HYPERHIDROSIS [None]
  - MENTAL IMPAIRMENT [None]
  - NAUSEA [None]
  - PARAESTHESIA [None]
